FAERS Safety Report 6711835-4 (Version None)
Quarter: 2010Q2

REPORT INFORMATION
  Report Type: 
  Country: None (occurrence: None)
  Receive Date: 20100505
  Receipt Date: 20100413
  Transmission Date: 20101027
  Serious: Yes (Other)
  Sender: FDA-Public Use
  Company Number: US-BAYER-201014243NA

PATIENT
  Age: 28 Year
  Sex: Female
  Weight: 95 kg

DRUGS (12)
  1. YASMIN [Suspect]
     Indication: CONTRACEPTION
     Route: 048
     Dates: start: 20021201, end: 20051201
  2. YASMIN [Suspect]
     Route: 048
     Dates: start: 20071129, end: 20080210
  3. LEVOTHYROXINE [Concomitant]
     Dates: start: 19980101
  4. PATANOL [Concomitant]
     Dates: start: 20010101
  5. NASONEX [Concomitant]
     Dates: start: 20010101, end: 20040101
  6. RHINOCORT [Concomitant]
     Dates: start: 20050101
  7. VITAMIN C [Concomitant]
     Dosage: OCCASIONAL FOR COLD SEASON
  8. NSAID'S [Concomitant]
  9. ANTIBIOTICS [Concomitant]
     Dosage: SPORADIC
  10. THYROID MEDICATIONS [Concomitant]
     Dates: start: 19980901
  11. ACETAMINOPHEN [Concomitant]
     Dates: start: 20080206, end: 20080210
  12. LORATADINE [Concomitant]

REACTIONS (9)
  - ANXIETY [None]
  - CEREBRAL VENOUS THROMBOSIS [None]
  - HAEMORRHAGIC TRANSFORMATION STROKE [None]
  - HEADACHE [None]
  - INJURY [None]
  - OEDEMA [None]
  - PANIC REACTION [None]
  - VISUAL IMPAIRMENT [None]
  - VOMITING [None]
